FAERS Safety Report 7314294-6 (Version None)
Quarter: 2011Q1

REPORT INFORMATION
  Report Type: 
  Country: None (occurrence: None)
  Receive Date: 20110225
  Receipt Date: 20100706
  Transmission Date: 20110831
  Serious: No
  Sender: FDA-Public Use
  Company Number: US-MYLANLABS-2010S1012229

PATIENT
  Sex: Male

DRUGS (1)
  1. AMNESTEEM [Suspect]
     Route: 048

REACTIONS (4)
  - EPISTAXIS [None]
  - SKIN CHAPPED [None]
  - SKIN HAEMORRHAGE [None]
  - OEDEMA PERIPHERAL [None]
